FAERS Safety Report 10202321 (Version 1)
Quarter: 2014Q2

REPORT INFORMATION
  Report Type: Spontaneous
  Country: IN (occurrence: IN)
  Receive Date: 20140528
  Receipt Date: 20140528
  Transmission Date: 20141212
  Serious: Yes (Other)
  Sender: FDA-Public Use
  Company Number: IN-ACTAVIS-2014-11234

PATIENT
  Age: 16 Year
  Sex: Male

DRUGS (1)
  1. PHENYTOIN (AMALLC) [Suspect]
     Indication: GENERALISED TONIC-CLONIC SEIZURE
     Dosage: 1000 MG, UNK; INFUSION OVER 1 H
     Route: 040

REACTIONS (1)
  - Compartment syndrome [Recovered/Resolved]
